FAERS Safety Report 22085537 (Version 1)
Quarter: 2023Q1

REPORT INFORMATION
  Report Type: Spontaneous
  Country: US (occurrence: US)
  Receive Date: 20230310
  Receipt Date: 20230310
  Transmission Date: 20230417
  Serious: Yes (Hospitalization, Other)
  Sender: FDA-Public Use
  Company Number: US-INCYTE CORPORATION-2023IN000765

PATIENT

DRUGS (1)
  1. JAKAFI [Suspect]
     Active Substance: RUXOLITINIB
     Indication: Graft versus host disease in skin
     Dosage: 10 MILLIGRAM, BID
     Route: 048
     Dates: start: 20220922

REACTIONS (4)
  - Pneumonia [Unknown]
  - Pulmonary embolism [Unknown]
  - Respiratory syncytial virus infection [Unknown]
  - Adenovirus infection [Unknown]
